FAERS Safety Report 14289604 (Version 1)
Quarter: 2017Q4

REPORT INFORMATION
  Report Type: Spontaneous
  Country: FR (occurrence: FR)
  Receive Date: 20171215
  Receipt Date: 20171215
  Transmission Date: 20180321
  Serious: Yes (Congenital Anomaly, Other)
  Sender: FDA-Public Use
  Company Number: FR-AUROBINDO-AUR-APL-2017-44695

PATIENT
  Sex: Male

DRUGS (1)
  1. LOPERAMIDE ARROW CAPSULE, HARD 2MG [Suspect]
     Active Substance: LOPERAMIDE
     Indication: DIARRHOEA
     Dosage: 3 DF, DAILY
     Route: 064
     Dates: start: 2017, end: 2017

REACTIONS (3)
  - Heart disease congenital [Unknown]
  - Renal aplasia [Unknown]
  - Foetal exposure during pregnancy [Unknown]

NARRATIVE: CASE EVENT DATE: 2017
